FAERS Safety Report 6824030-5 (Version None)
Quarter: 2010Q3

REPORT INFORMATION
  Report Type: 
  Country: None (occurrence: None)
  Receive Date: 20100708
  Receipt Date: 20060926
  Transmission Date: 20110219
  Serious: No
  Sender: FDA-Public Use
  Company Number: US-PFIZER INC-2006119508

PATIENT
  Sex: Female
  Weight: 57.61 kg

DRUGS (7)
  1. CHANTIX [Suspect]
     Indication: SMOKING CESSATION THERAPY
     Dates: start: 20060913
  2. DIOVAN HCT [Concomitant]
     Indication: HYPERTENSION
     Dates: end: 20060901
  3. LEVOXYL [Concomitant]
  4. XANAX [Concomitant]
  5. PROMETHAZINE [Concomitant]
     Dates: start: 20060901
  6. RHINOCORT [Concomitant]
     Dates: start: 20060901
  7. VALSARTAN [Concomitant]
     Indication: HYPERTENSION
     Dates: start: 20060901

REACTIONS (6)
  - ABDOMINAL DISCOMFORT [None]
  - BLOOD PRESSURE FLUCTUATION [None]
  - DRUG WITHDRAWAL SYNDROME [None]
  - MALAISE [None]
  - NAUSEA [None]
  - VOMITING [None]
